FAERS Safety Report 7571055-0 (Version None)
Quarter: 2011Q2

REPORT INFORMATION
  Report Type: 
  Country: None (occurrence: None)
  Receive Date: 20110624
  Receipt Date: 20110620
  Transmission Date: 20111010
  Serious: Yes (Other)
  Sender: FDA-Public Use
  Company Number: US-ROCHE-784885

PATIENT
  Sex: Male

DRUGS (3)
  1. AMNESTEEM [Suspect]
     Indication: ACNE
     Route: 065
     Dates: start: 20090601, end: 20090701
  2. ACCUTANE [Suspect]
     Indication: ACNE
     Route: 065
  3. SOTRET [Suspect]
     Indication: ACNE
     Route: 065
     Dates: start: 20090201, end: 20090601

REACTIONS (4)
  - ANXIETY [None]
  - INFLAMMATORY BOWEL DISEASE [None]
  - COLITIS ULCERATIVE [None]
  - CROHN'S DISEASE [None]
